FAERS Safety Report 10010746 (Version 2)
Quarter: 2014Q2

REPORT INFORMATION
  Report Type: Spontaneous
  Country: IT (occurrence: None)
  Receive Date: 20140311
  Receipt Date: 20140429
  Transmission Date: 20141212
  Serious: Yes (Life-Threatening)
  Sender: FDA-Public Use
  Company Number: AUR-APL-2014-02413

PATIENT
  Age: 65 Year
  Sex: Male
  Weight: 65 kg

DRUGS (7)
  1. VERAPAMIL (VERAPAMIL) [Concomitant]
  2. LEVOFLOXACIN [Suspect]
     Indication: BRONCHITIS
     Route: 048
     Dates: start: 20140119, end: 20140121
  3. THEO-DUR [Suspect]
     Indication: CHRONIC OBSTRUCTIVE PULMONARY DISEASE
     Route: 048
  4. KEPPRA (LEVETIRACETAM) [Concomitant]
  5. TRITTICO (TRAZODONE HYDROCHLORIDE) [Concomitant]
  6. SERETIDE DISKUS (SERETIDE) [Concomitant]
  7. VERTISERC (BETAHISTINE HYDROCHLORIDE) [Concomitant]

REACTIONS (3)
  - Convulsion [None]
  - Drug interaction [None]
  - Drug prescribing error [None]
